FAERS Safety Report 22366501 (Version 1)
Quarter: 2023Q2

REPORT INFORMATION
  Report Type: Spontaneous
  Country: US (occurrence: None)
  Receive Date: 20230524
  Receipt Date: 20230524
  Transmission Date: 20230722
  Serious: Yes (Hospitalization)
  Sender: FDA-Public Use
  Company Number: None

PATIENT
  Age: 3 Month
  Sex: Male
  Weight: 6.54 kg

DRUGS (1)
  1. ACTH [Suspect]
     Active Substance: CORTICOTROPIN
     Indication: Infantile spasms
     Dates: start: 20230510, end: 20230524

REACTIONS (2)
  - Cardiac hypertrophy [None]
  - Adverse drug reaction [None]

NARRATIVE: CASE EVENT DATE: 20230524
